FAERS Safety Report 10554337 (Version 2)
Quarter: 2014Q4

REPORT INFORMATION
  Report Type: Spontaneous
  Country: US (occurrence: US)
  Receive Date: 20141030
  Receipt Date: 20141110
  Transmission Date: 20150529
  Serious: Yes (Other)
  Sender: FDA-Public Use
  Company Number: US-ELI_LILLY_AND_COMPANY-US201410009656

PATIENT
  Sex: Female

DRUGS (3)
  1. GLIMEPIRIDE. [Concomitant]
     Active Substance: GLIMEPIRIDE
  2. PRANDIN                            /00882701/ [Concomitant]
  3. HUMULIN N [Suspect]
     Active Substance: INSULIN HUMAN
     Indication: TYPE 2 DIABETES MELLITUS
     Dosage: 18 U, BID
     Route: 065
     Dates: start: 201407

REACTIONS (5)
  - Blood glucose increased [Unknown]
  - Lower limb fracture [Unknown]
  - Pain [Unknown]
  - Memory impairment [Unknown]
  - Bradyphrenia [Unknown]
